FAERS Safety Report 13510307 (Version 1)
Quarter: 2017Q2

REPORT INFORMATION
  Report Type: Spontaneous
  Country: CZ (occurrence: CZ)
  Receive Date: 20170503
  Receipt Date: 20170503
  Transmission Date: 20170830
  Serious: Yes (Other)
  Sender: FDA-Public Use
  Company Number: CZ-INCYTE CORPORATION-2017IN003382

PATIENT
  Sex: Female

DRUGS (6)
  1. EPOETIN ALFA [Suspect]
     Active Substance: ERYTHROPOIETIN
     Indication: PRODUCT USED FOR UNKNOWN INDICATION
     Dosage: 40000 OT, QW 6 MONTHS AFTER START OF JAKAVI
     Route: 065
  2. JAKAVI [Suspect]
     Active Substance: RUXOLITINIB
     Indication: MYELOFIBROSIS
     Dosage: 15 MG, BID (1-0-1)
     Route: 065
     Dates: start: 20151027, end: 20151127
  3. LITALIR [Concomitant]
     Active Substance: HYDROXYUREA
     Indication: PRODUCT USED FOR UNKNOWN INDICATION
     Dosage: UNK
     Route: 065
     Dates: start: 20151027
  4. JAKAVI [Suspect]
     Active Substance: RUXOLITINIB
     Dosage: 15 MG, QD
     Route: 065
     Dates: start: 20151127
  5. EPOETIN ALFA [Suspect]
     Active Substance: ERYTHROPOIETIN
     Dosage: 30000 OT, BIW 18 MONTHS AFTER START OF JAKAVI
     Route: 065
  6. JAKAVI [Suspect]
     Active Substance: RUXOLITINIB
     Dosage: 15 MG, QD (2X 1/2), 6 MONTHS AFTER START OF JAKAVI
     Route: 065

REACTIONS (8)
  - Thrombocytopenia [Unknown]
  - Haematoma [Unknown]
  - Fatigue [Unknown]
  - Dyspnoea exertional [Unknown]
  - Liver disorder [Unknown]
  - Somnolence [Unknown]
  - Serum ferritin decreased [Unknown]
  - Epistaxis [Unknown]

NARRATIVE: CASE EVENT DATE: 20151127
